FAERS Safety Report 9744498 (Version 2)
Quarter: 2014Q1

REPORT INFORMATION
  Report Type: Spontaneous
  Country: US (occurrence: US)
  Receive Date: 20131210
  Receipt Date: 20140228
  Transmission Date: 20141002
  Serious: No
  Sender: FDA-Public Use
  Company Number: US-009507513-1312USA004624

PATIENT
  Sex: Female
  Weight: 70.3 kg

DRUGS (18)
  1. OXYTROL FOR WOMEN [Suspect]
     Indication: HYPERTONIC BLADDER
     Dosage: 1 DF, Q4D
     Route: 062
  2. OXYTROL FOR WOMEN [Suspect]
     Indication: INCONTINENCE
  3. KLOR-CON [Concomitant]
     Indication: BLOOD CHOLESTEROL
     Dosage: 2 DF, QD
  4. BYSTOLIC [Concomitant]
     Indication: HYPERTENSION
     Dosage: UNK, UNKNOWN
  5. VERAPAMIL [Concomitant]
     Indication: HYPERTENSION
     Dosage: UNK, UNKNOWN
  6. NEXIUM [Concomitant]
     Indication: GASTROOESOPHAGEAL REFLUX DISEASE
     Dosage: UNK, UNKNOWN
  7. ABILIFY [Concomitant]
     Indication: PRODUCT USED FOR UNKNOWN INDICATION
     Dosage: 2 MG, QAM
  8. RESTORIL (TEMAZEPAM) [Concomitant]
     Indication: SLEEP DISORDER THERAPY
     Dosage: 30 MG, UNKNOWN
  9. XANAX [Concomitant]
     Indication: SLEEP DISORDER THERAPY
     Dosage: 1 DF, UNKNOWN
  10. PERCOCET [Concomitant]
     Indication: BACK PAIN
     Dosage: UNK, UNKNOWN
  11. ROBAXIN [Concomitant]
     Indication: BACK PAIN
     Dosage: UNK, UNKNOWN
  12. MELATONIN [Concomitant]
     Indication: SLEEP DISORDER THERAPY
     Dosage: UNK, UNKNOWN
  13. CHOLECALCIFEROL [Concomitant]
     Indication: PRODUCT USED FOR UNKNOWN INDICATION
     Dosage: UNK, UNKNOWN
  14. POSTURE-D [Concomitant]
     Indication: PRODUCT USED FOR UNKNOWN INDICATION
     Dosage: UNK, UNKNOWN
  15. CENTRUM SILVER [Concomitant]
     Indication: PRODUCT USED FOR UNKNOWN INDICATION
     Dosage: UNK, UNKNOWN
  16. GLUCOSAMINE [Concomitant]
     Indication: ARTHROPATHY
     Dosage: UNK, UNKNOWN
  17. OMEGA-3 MARINE TRIGLYCERIDES [Concomitant]
     Indication: PRODUCT USED FOR UNKNOWN INDICATION
     Dosage: UNK, UNKNOWN
  18. METAMUCIL [Concomitant]
     Indication: PRODUCT USED FOR UNKNOWN INDICATION
     Dosage: UNK, UNKNOWN

REACTIONS (4)
  - Burning sensation [Recovered/Resolved]
  - Erythema [Recovered/Resolved]
  - Pruritus [Recovered/Resolved]
  - Drug ineffective [Unknown]
